FAERS Safety Report 10029595 (Version 1)
Quarter: 2014Q1

REPORT INFORMATION
  Report Type: Spontaneous
  Country: US (occurrence: None)
  Receive Date: 20140320
  Receipt Date: 20140320
  Transmission Date: 20141002
  Serious: No
  Sender: FDA-Public Use
  Company Number: None

PATIENT
  Sex: Female

DRUGS (1)
  1. TRI-SPRINTEC [Suspect]
     Indication: CONTRACEPTION
     Dosage: 0.18 / 0.215 / 0.25 / 0.35  DAILY PO
     Route: 048

REACTIONS (4)
  - Acne [None]
  - Weight increased [None]
  - Dysmenorrhoea [None]
  - Product substitution issue [None]
